FAERS Safety Report 23748773 (Version 1)
Quarter: 2024Q2

REPORT INFORMATION
  Report Type: Spontaneous
  Country: CN (occurrence: None)
  Receive Date: 20240416
  Receipt Date: 20240416
  Transmission Date: 20240716
  Serious: Yes (Other)
  Sender: FDA-Public Use
  Company Number: 2024A083782

PATIENT
  Age: 57 Year
  Sex: Male

DRUGS (13)
  1. OSIMERTINIB [Suspect]
     Active Substance: OSIMERTINIB
     Indication: Lung adenocarcinoma
     Route: 048
     Dates: start: 202108
  2. GEFITINIB [Suspect]
     Active Substance: GEFITINIB
     Dosage: SIXTH LINE
     Route: 048
     Dates: start: 20230506
  3. BEVACIZUMAB [Suspect]
     Active Substance: BEVACIZUMAB
     Indication: Lung adenocarcinoma
     Dosage: THIRD LINE
     Dates: start: 202206
  4. BEVACIZUMAB [Suspect]
     Active Substance: BEVACIZUMAB
     Indication: Lung adenocarcinoma
     Dosage: SIXTH LINE
     Dates: start: 20230506
  5. TISLELIZUMAB [Suspect]
     Active Substance: TISLELIZUMAB
     Indication: Lung adenocarcinoma
     Dosage: SECOND LINE
     Dates: start: 202204
  6. TISLELIZUMAB [Suspect]
     Active Substance: TISLELIZUMAB
     Indication: Lung adenocarcinoma
     Dosage: THIRD LINE
     Dates: start: 202206
  7. PEMETREXED [Suspect]
     Active Substance: PEMETREXED
     Indication: Lung adenocarcinoma
     Dosage: SECOND LINE
     Dates: start: 202204
  8. CISPLATIN [Suspect]
     Active Substance: CISPLATIN
     Indication: Lung adenocarcinoma
     Dosage: SECOND LINE
     Dates: start: 202204
  9. PACLITAXEL [Suspect]
     Active Substance: PACLITAXEL
     Indication: Lung adenocarcinoma
     Dosage: THIRD LINE
     Dates: start: 202206
  10. CARBOPLATIN [Suspect]
     Active Substance: CARBOPLATIN
     Indication: Lung adenocarcinoma
     Dosage: THIRD LINE
     Dates: start: 202206
  11. CATEQUENTINIB [Suspect]
     Active Substance: CATEQUENTINIB
     Indication: Lung adenocarcinoma
     Dosage: THIRD LINE
     Dates: start: 2022
  12. INVESTIGATIONAL PRODUCT [Suspect]
     Active Substance: INVESTIGATIONAL PRODUCT
     Indication: Lung adenocarcinoma
     Dosage: THIRD LINE
     Dates: start: 20221215
  13. INVESTIGATIONAL PRODUCT [Suspect]
     Active Substance: INVESTIGATIONAL PRODUCT
     Indication: Lung adenocarcinoma
     Dosage: THIRD LINE
     Dates: start: 20230111

REACTIONS (4)
  - Drug resistance [Unknown]
  - Acquired gene mutation [Unknown]
  - Malignant neoplasm progression [Unknown]
  - Drug intolerance [Unknown]
